FAERS Safety Report 20364169 (Version 2)
Quarter: 2022Q1

REPORT INFORMATION
  Report Type: Report from Study
  Country: US (occurrence: US)
  Receive Date: 20220121
  Receipt Date: 20220309
  Transmission Date: 20220423
  Serious: Yes (Other)
  Sender: FDA-Public Use
  Company Number: US-UCBSA-2021018518

PATIENT
  Sex: Female
  Weight: 73 kg

DRUGS (13)
  1. CERTOLIZUMAB PEGOL [Suspect]
     Active Substance: CERTOLIZUMAB PEGOL
     Indication: Crohn^s disease
     Dosage: 400 MILLIGRAM, MONTHLY (QM)
     Route: 058
     Dates: start: 20161215, end: 20210927
  2. TYLENOL [Concomitant]
     Active Substance: ACETAMINOPHEN
     Indication: Headache
     Dosage: 250 MILLIGRAM, 3 TOTL
     Route: 048
     Dates: start: 20201225, end: 20210315
  3. CHOLECALCIFEROL [Concomitant]
     Active Substance: CHOLECALCIFEROL
     Indication: Nutritional supplementation
     Dosage: 125 MICROGRAM, 3.5 WK
     Route: 048
     Dates: start: 20201225, end: 20210716
  4. ZINC [Concomitant]
     Active Substance: ZINC
     Indication: Nutritional supplementation
     Dosage: 50 MILLIGRAM, ONCE DAILY (QD)
     Route: 048
     Dates: start: 20201225, end: 20210716
  5. PFIZER-BIONTECH COVID-19 VACCINE [Concomitant]
     Active Substance: TOZINAMERAN
     Indication: Product used for unknown indication
     Dosage: 1 SHOT 1 DAY
     Route: 030
     Dates: start: 20210828, end: 20210828
  6. PFIZER-BIONTECH COVID-19 VACCINE [Concomitant]
     Active Substance: TOZINAMERAN
     Dosage: 1 SHOT 1 DAY
     Route: 030
     Dates: start: 20210918, end: 20210918
  7. MINERALS\VITAMINS [Concomitant]
     Active Substance: MINERALS\VITAMINS
     Indication: Product used for unknown indication
     Dosage: 1 DOSAGE FORM, ONCE DAILY (QD)
     Route: 048
     Dates: start: 20161115, end: 20210927
  8. TETANUS TOXOID, REDUCED DIPHTHERIA TOXOID AND ACELLULAR PERTUSSIS VACC [Concomitant]
     Active Substance: TETANUS TOXOID, REDUCED DIPHTHERIA TOXOID AND ACELLULAR PERTUSSIS VACCINE ADSORBED, TDAP
     Indication: Product used for unknown indication
     Dosage: 1 SHOT 1 DAY
     Route: 030
     Dates: start: 20210709, end: 20210709
  9. OVIDREL [Concomitant]
     Active Substance: CHORIOGONADOTROPIN ALFA
     Indication: Artificial insemination
     Dosage: 1 SHOT, 7 TOTL
     Dates: start: 20200315, end: 20210115
  10. FOLIC ACID [Concomitant]
     Active Substance: FOLIC ACID
     Indication: Pregnancy
     Dosage: 800 MICROGRAM, ONCE DAILY (QD)
     Route: 048
     Dates: start: 20201225, end: 20210927
  11. INFLUENZA VIRUS VACCINE [Concomitant]
     Active Substance: INFLUENZA VIRUS VACCINE
     Indication: Product used for unknown indication
     Dosage: 1 SHOT, 1 TOTL
     Route: 030
     Dates: start: 20201001, end: 20201031
  12. FISH OIL [Concomitant]
     Active Substance: FISH OIL
     Indication: Nutritional supplementation
     Dosage: 1400 MILLIGRAM, ONCE DAILY (QD)
     Route: 048
     Dates: start: 20201225, end: 20210927
  13. CLOMID [Concomitant]
     Active Substance: CLOMIPHENE CITRATE
     Indication: Artificial insemination
     Dosage: 50 MILLIGRAM, 5 MNTH
     Route: 048
     Dates: start: 20200315, end: 20210115

REACTIONS (11)
  - Amniocentesis abnormal [Unknown]
  - Polyhydramnios [Unknown]
  - Vanishing twin syndrome [Unknown]
  - Twin pregnancy [Unknown]
  - Maternal exposure during breast feeding [Unknown]
  - Maternal exposure before pregnancy [Unknown]
  - Maternal exposure during pregnancy [Unknown]
  - Migraine [Recovered/Resolved]
  - Infertility [Recovered/Resolved]
  - Hypersensitivity [Recovered/Resolved]
  - Artificial insemination [Recovered/Resolved]

NARRATIVE: CASE EVENT DATE: 20190101
